FAERS Safety Report 6142345-3 (Version None)
Quarter: 2009Q2

REPORT INFORMATION
  Report Type: 
  Country: None (occurrence: None)
  Receive Date: 20090403
  Receipt Date: 20090326
  Transmission Date: 20091009
  Serious: Yes (Other)
  Sender: FDA-Public Use
  Company Number: DE-JNJFOC-20090307209

PATIENT
  Age: 12 Year
  Sex: Female

DRUGS (2)
  1. DOLORMIN SCHMERZTABLETTEN [Suspect]
  2. DOLORMIN SCHMERZTABLETTEN [Suspect]
     Indication: DRUG EXPOSURE DURING PREGNANCY

REACTIONS (1)
  - ATTENTION DEFICIT/HYPERACTIVITY DISORDER [None]
